FAERS Safety Report 10449452 (Version 1)
Quarter: 2014Q3

REPORT INFORMATION
  Report Type: Spontaneous
  Country: JP (occurrence: JP)
  Receive Date: 20140912
  Receipt Date: 20140912
  Transmission Date: 20150326
  Serious: Yes (Other)
  Sender: FDA-Public Use
  Company Number: PHHY2013JP161767

PATIENT
  Age: 65 Year
  Sex: Male

DRUGS (2)
  1. NEORAL [Suspect]
     Active Substance: CYCLOSPORINE
     Dosage: UNK UKN, UNK
  2. EXJADE [Suspect]
     Active Substance: DEFERASIROX
     Indication: MYELOID LEUKAEMIA
     Dosage: 250 MG, DAILY (5 MG/KG)
     Dates: start: 201202, end: 201208

REACTIONS (2)
  - Graft versus host disease [Unknown]
  - Cytomegalovirus test positive [Recovered/Resolved]
